FAERS Safety Report 8622556-5 (Version None)
Quarter: 2012Q3

REPORT INFORMATION
  Report Type: 
  Country: None (occurrence: None)
  Receive Date: 20120822
  Receipt Date: 20120822
  Transmission Date: 20120928
  Serious: Yes (Hospitalization)
  Sender: FDA-Public Use
  Company Number: None

PATIENT
  Sex: Female
  Weight: 82.5547 kg

DRUGS (2)
  1. TOVIAZ [Suspect]
     Indication: NOCTURIA
     Dosage: 4MG BY MOUTH, ONCE DAILY
     Dates: start: 20110926, end: 20111021
  2. TOVIAZ [Suspect]
     Indication: HYPERTONIC BLADDER
     Dosage: 4MG BY MOUTH, ONCE DAILY
     Dates: start: 20110926, end: 20111021

REACTIONS (1)
  - URINARY RETENTION [None]
